FAERS Safety Report 4998606-4 (Version None)
Quarter: 2006Q2

REPORT INFORMATION
  Report Type: 
  Country: None (occurrence: None)
  Receive Date: 20060508
  Receipt Date: 20060420
  Transmission Date: 20061013
  Serious: Yes (Hospitalization)
  Sender: FDA-Public Use
  Company Number: DSA_28087_2006

PATIENT
  Age: 9 Year
  Sex: Female

DRUGS (1)
  1. TAVOR /00273201/ [Suspect]
     Indication: EPILEPSY
     Dosage: 2.5 MG ONCE SL
     Route: 060
     Dates: start: 20060331, end: 20060331

REACTIONS (10)
  - ABASIA [None]
  - ASTHENIA [None]
  - DYSSTASIA [None]
  - FALL [None]
  - HALLUCINATION, VISUAL [None]
  - HYPERKINESIA [None]
  - INAPPROPRIATE AFFECT [None]
  - MENTAL DISORDER [None]
  - PARADOXICAL DRUG REACTION [None]
  - RESTLESSNESS [None]
